FAERS Safety Report 19790119 (Version 1)
Quarter: 2021Q3

REPORT INFORMATION
  Report Type: Report from Study
  Country: None (occurrence: US)
  Receive Date: 20210905
  Receipt Date: 20210905
  Transmission Date: 20211014
  Serious: Yes (Other)
  Sender: FDA-Public Use
  Company Number: US-ABBVIE-21K-163-4066675-00

PATIENT
  Age: 72 Year
  Sex: Female

DRUGS (7)
  1. SKYRIZI [Suspect]
     Active Substance: RISANKIZUMAB-RZAA
     Indication: PSORIASIS
     Route: 058
     Dates: start: 20210429, end: 2021
  2. SKYRIZI [Suspect]
     Active Substance: RISANKIZUMAB-RZAA
     Route: 058
     Dates: start: 2021
  3. CHOLESTEROL MEDIATION [Concomitant]
     Indication: BLOOD CHOLESTEROL INCREASED
     Route: 048
  4. ELIQUIS [Concomitant]
     Active Substance: APIXABAN
     Indication: ATRIAL FIBRILLATION
     Route: 048
  5. COVID?19 VACCINE [Concomitant]
     Indication: COVID-19 IMMUNISATION
     Route: 030
     Dates: start: 20210701, end: 20210701
  6. COVID?19 VACCINE [Concomitant]
     Route: 030
     Dates: start: 20210801, end: 20210801
  7. THYROID MEDICATION [Concomitant]
     Active Substance: UNSPECIFIED INGREDIENT
     Indication: HYPOTHYROIDISM
     Route: 048

REACTIONS (6)
  - Lip swelling [Unknown]
  - Psoriasis [Not Recovered/Not Resolved]
  - Heart rate increased [Unknown]
  - Swollen tongue [Unknown]
  - Cerebrovascular accident [Recovered/Resolved]
  - Paraesthesia oral [Unknown]

NARRATIVE: CASE EVENT DATE: 2021
